FAERS Safety Report 5580238-0 (Version None)
Quarter: 2007Q4

REPORT INFORMATION
  Report Type: 
  Country: None (occurrence: None)
  Receive Date: 20071231
  Receipt Date: 20071231
  Transmission Date: 20080405
  Serious: Yes (Life-Threatening)
  Sender: FDA-Public Use
  Company Number: None

PATIENT
  Age: 64 Year
  Sex: Female
  Weight: 99 kg

DRUGS (7)
  1. ERYTHROMYCIN [Suspect]
     Indication: IMPAIRED GASTRIC EMPTYING
     Dosage: 100MG IV X1
     Route: 042
     Dates: start: 20070405
  2. LAMICTAL [Concomitant]
  3. REQUIP [Concomitant]
  4. GABAPENTIN [Concomitant]
  5. ZANAFLEX [Concomitant]
  6. TOPAMAX [Concomitant]
  7. OXYCODONE [Concomitant]

REACTIONS (3)
  - BRADYCARDIA [None]
  - ELECTROCARDIOGRAM QT PROLONGED [None]
  - HYPOTENSION [None]
